FAERS Safety Report 21550542 (Version 3)
Quarter: 2022Q4

REPORT INFORMATION
  Report Type: Report from Study
  Country: FR (occurrence: FR)
  Receive Date: 20221103
  Receipt Date: 20221211
  Transmission Date: 20230113
  Serious: Yes (Hospitalization, Other)
  Sender: FDA-Public Use
  Company Number: FR-TAKEDA-2022TUS080346

PATIENT
  Sex: Female

DRUGS (16)
  1. TEDUGLUTIDE [Suspect]
     Active Substance: TEDUGLUTIDE
     Indication: Short-bowel syndrome
     Dosage: 3.2 MILLIGRAM, 3/WEEK
     Route: 042
     Dates: start: 20190513, end: 20210304
  2. TEDUGLUTIDE [Suspect]
     Active Substance: TEDUGLUTIDE
     Indication: Short-bowel syndrome
     Dosage: 3.2 MILLIGRAM, 3/WEEK
     Route: 042
     Dates: start: 20190513, end: 20210304
  3. TEDUGLUTIDE [Suspect]
     Active Substance: TEDUGLUTIDE
     Indication: Short-bowel syndrome
     Dosage: 3.2 MILLIGRAM, 3/WEEK
     Route: 042
     Dates: start: 20190513, end: 20210304
  4. TEDUGLUTIDE [Suspect]
     Active Substance: TEDUGLUTIDE
     Indication: Short-bowel syndrome
     Dosage: 3.2 MILLIGRAM, 3/WEEK
     Route: 042
     Dates: start: 20190513, end: 20210304
  5. TEDUGLUTIDE [Suspect]
     Active Substance: TEDUGLUTIDE
     Dosage: 2 MILLIGRAM, 3/WEEK
     Route: 042
     Dates: start: 20210430
  6. TEDUGLUTIDE [Suspect]
     Active Substance: TEDUGLUTIDE
     Dosage: 2 MILLIGRAM, 3/WEEK
     Route: 042
     Dates: start: 20210430
  7. TEDUGLUTIDE [Suspect]
     Active Substance: TEDUGLUTIDE
     Dosage: 2 MILLIGRAM, 3/WEEK
     Route: 042
     Dates: start: 20210430
  8. TEDUGLUTIDE [Suspect]
     Active Substance: TEDUGLUTIDE
     Dosage: 2 MILLIGRAM, 3/WEEK
     Route: 042
     Dates: start: 20210430
  9. OMEPRAZOLE [Concomitant]
     Active Substance: OMEPRAZOLE
     Indication: Prophylaxis
     Dosage: 1 DOSAGE FORM, BID
     Route: 048
     Dates: start: 20200701
  10. ACETAMINOPHEN [Concomitant]
     Active Substance: ACETAMINOPHEN
     Indication: Prophylaxis
     Dosage: 1000 MILLIGRAM, TID
     Route: 048
     Dates: start: 20200701
  11. IMODIUM [Concomitant]
     Active Substance: LOPERAMIDE HYDROCHLORIDE
     Indication: Prophylaxis
     Dosage: 1 DOSAGE FORM
     Route: 048
     Dates: start: 20200701
  12. Orocal [Concomitant]
     Indication: Prophylaxis
     Dosage: 1 DOSAGE FORM, TID
     Route: 048
     Dates: start: 20200701
  13. DARBEPOETIN ALFA [Concomitant]
     Active Substance: DARBEPOETIN ALFA
     Dosage: 300 MILLIGRAM, 1/WEEK
     Route: 058
     Dates: start: 20221018
  14. IRBESARTAN [Concomitant]
     Active Substance: IRBESARTAN
     Indication: Prophylaxis
     Dosage: 150 MILLIGRAM, QD
     Route: 048
     Dates: start: 20211221
  15. LERCANIDIPINE [Concomitant]
     Active Substance: LERCANIDIPINE
     Indication: Prophylaxis
     Dosage: 20 MILLIGRAM, QD
     Route: 048
     Dates: start: 20210322
  16. AMITRIPTYLINE HYDROCHLORIDE [Concomitant]
     Active Substance: AMITRIPTYLINE HYDROCHLORIDE
     Indication: Prophylaxis
     Dosage: 15 GTT DROPS, QD
     Route: 048
     Dates: start: 20210322

REACTIONS (2)
  - Urinary tract infection bacterial [Recovered/Resolved]
  - Acute kidney injury [Recovered/Resolved]

NARRATIVE: CASE EVENT DATE: 20220428
